FAERS Safety Report 7799545-6 (Version None)
Quarter: 2011Q4

REPORT INFORMATION
  Report Type: 
  Country: None (occurrence: None)
  Receive Date: 20111006
  Receipt Date: 20111006
  Transmission Date: 20120403
  Serious: Yes (Life-Threatening, Hospitalization, Disabling)
  Sender: FDA-Public Use
  Company Number: None

PATIENT
  Sex: Female
  Weight: 49.9 kg

DRUGS (1)
  1. ROCURONIUM BROMIDE [Suspect]
     Indication: PARALYSIS
     Dosage: 35 MG
     Route: 042
     Dates: start: 20111004, end: 20111004

REACTIONS (3)
  - LACTIC ACIDOSIS [None]
  - SHOCK [None]
  - ANAPHYLACTIC REACTION [None]
